FAERS Safety Report 12081542 (Version 1)
Quarter: 2016Q1

REPORT INFORMATION
  Report Type: Spontaneous
  Country: US (occurrence: US)
  Receive Date: 20160216
  Receipt Date: 20160216
  Transmission Date: 20160526
  Serious: No
  Sender: FDA-Public Use
  Company Number: US-009507513-1602USA005986

PATIENT
  Age: 39 Year
  Sex: Male

DRUGS (1)
  1. ZETIA [Suspect]
     Active Substance: EZETIMIBE
     Indication: BLOOD CHOLESTEROL INCREASED
     Dosage: 10 MG, DAILY
     Route: 048
     Dates: start: 20160207, end: 20160210

REACTIONS (5)
  - Urticaria [Unknown]
  - Pruritus [Unknown]
  - Myalgia [Unknown]
  - Mood swings [Unknown]
  - Irritability [Unknown]

NARRATIVE: CASE EVENT DATE: 20160207
